FAERS Safety Report 18917114 (Version 1)
Quarter: 2021Q1

REPORT INFORMATION
  Report Type: Spontaneous
  Country: IT (occurrence: IT)
  Receive Date: 20210219
  Receipt Date: 20210219
  Transmission Date: 20210420
  Serious: Yes (Other)
  Sender: FDA-Public Use
  Company Number: IT-ASTRAZENECA-2021A057574

PATIENT
  Age: 90 Year
  Sex: Male

DRUGS (1)
  1. OSIMERTINIB. [Suspect]
     Active Substance: OSIMERTINIB
     Indication: LUNG ADENOCARCINOMA STAGE IV
     Route: 048
     Dates: start: 201903, end: 202005

REACTIONS (5)
  - Drug resistance [Unknown]
  - Acquired gene mutation [Unknown]
  - Malignant transformation [Unknown]
  - Neuroendocrine tumour of the lung metastatic [Unknown]
  - Malignant neoplasm progression [Unknown]
